FAERS Safety Report 10128598 (Version 2)
Quarter: 2014Q2

REPORT INFORMATION
  Report Type: Spontaneous
  Country: BR (occurrence: BR)
  Receive Date: 20140428
  Receipt Date: 20140428
  Transmission Date: 20141212
  Serious: Yes (Other)
  Sender: FDA-Public Use
  Company Number: BR-JNJFOC-20140405373

PATIENT
  Age: 68 Year
  Sex: Female

DRUGS (3)
  1. XARELTO [Suspect]
     Indication: PRODUCT USED FOR UNKNOWN INDICATION
     Route: 048
     Dates: start: 20140320
  2. TAZOCIN [Concomitant]
     Indication: URINARY TRACT INFECTION
     Route: 065
  3. CIPRO [Concomitant]
     Route: 065

REACTIONS (1)
  - Hepatitis [Recovering/Resolving]
